FAERS Safety Report 7115697-5 (Version None)
Quarter: 2010Q4

REPORT INFORMATION
  Report Type: 
  Country: None (occurrence: None)
  Receive Date: 20101122
  Receipt Date: 20101112
  Transmission Date: 20110411
  Serious: Yes (Hospitalization)
  Sender: FDA-Public Use
  Company Number: US-JNJFOC-20101105399

PATIENT
  Sex: Female
  Weight: 36.2 kg

DRUGS (6)
  1. REMICADE [Suspect]
     Indication: INFLAMMATORY BOWEL DISEASE
     Route: 042
  2. GROWTH HORMONE [Concomitant]
  3. FILGRASTIM [Concomitant]
  4. OMEPRAZOLE [Concomitant]
  5. IBUPROPHEN [Concomitant]
  6. ALEVE (CAPLET) [Concomitant]

REACTIONS (1)
  - ANASTOMOTIC STENOSIS [None]
